FAERS Safety Report 15648163 (Version 2)
Quarter: 2018Q4

REPORT INFORMATION
  Report Type: Spontaneous
  Country: JP (occurrence: JP)
  Receive Date: 20181122
  Receipt Date: 20181218
  Transmission Date: 20190205
  Serious: Yes (Hospitalization, Other)
  Sender: FDA-Public Use
  Company Number: JP-PFIZER INC-2018421334

PATIENT
  Age: 48 Year
  Sex: Male

DRUGS (3)
  1. EFFEXOR [Suspect]
     Active Substance: VENLAFAXINE HYDROCHLORIDE
     Dosage: 75 MG, 1X/DAY
     Route: 048
     Dates: start: 20180914, end: 20180927
  2. EFFEXOR [Suspect]
     Active Substance: VENLAFAXINE HYDROCHLORIDE
     Indication: DEPRESSION
     Dosage: 37.5 MG, 1X/DAY
     Route: 048
     Dates: start: 20180831, end: 20180913
  3. EFFEXOR [Suspect]
     Active Substance: VENLAFAXINE HYDROCHLORIDE
     Dosage: 112.5 MG, 1X/DAY
     Route: 048
     Dates: start: 20180928, end: 20181009

REACTIONS (19)
  - Blood phosphorus increased [Recovered/Resolved]
  - Gamma-glutamyltransferase increased [Recovering/Resolving]
  - Monocyte percentage increased [Unknown]
  - Blood urea increased [Recovered/Resolved]
  - C-reactive protein increased [Not Recovered/Not Resolved]
  - Haemoglobin decreased [Not Recovered/Not Resolved]
  - Aspartate aminotransferase increased [Recovering/Resolving]
  - Blood lactate dehydrogenase increased [Recovered/Resolved]
  - Serotonin syndrome [Recovered/Resolved]
  - Blood creatine phosphokinase increased [Recovering/Resolving]
  - Lymphocyte percentage decreased [Recovered/Resolved]
  - Hyperhidrosis [Recovered/Resolved]
  - Alanine aminotransferase increased [Recovering/Resolving]
  - Tremor [Recovered/Resolved]
  - Glomerular filtration rate decreased [Recovering/Resolving]
  - Blood creatinine increased [Recovered/Resolved]
  - Neutrophil percentage increased [Recovered/Resolved]
  - Haematocrit decreased [Not Recovered/Not Resolved]
  - Red blood cell count decreased [Not Recovered/Not Resolved]

NARRATIVE: CASE EVENT DATE: 20181006
